FAERS Safety Report 25260558 (Version 1)
Quarter: 2025Q2

REPORT INFORMATION
  Report Type: Report from Study
  Country: DO (occurrence: DO)
  Receive Date: 20250501
  Receipt Date: 20250501
  Transmission Date: 20250717
  Serious: Yes (Hospitalization)
  Sender: NOVO NORDISK
  Company Number: DO-NOVOPROD-1403652

PATIENT
  Age: 26 Year
  Sex: Female
  Weight: 102 kg

DRUGS (2)
  1. SAXENDA [Suspect]
     Active Substance: LIRAGLUTIDE
     Indication: Blood insulin increased
  2. SAXENDA [Suspect]
     Active Substance: LIRAGLUTIDE
     Indication: Overweight
     Dosage: 1.2 MG, QD (FOR MORE THAN A YEAR)
     Route: 058
     Dates: end: 20250220

REACTIONS (3)
  - Fallopian tube disorder [Recovering/Resolving]
  - Ectopic pregnancy [Recovering/Resolving]
  - Maternal exposure during pregnancy [Recovered/Resolved]

NARRATIVE: CASE EVENT DATE: 20250220
